FAERS Safety Report 20006992 (Version 1)
Quarter: 2021Q4

REPORT INFORMATION
  Report Type: Report from Study
  Country: US (occurrence: US)
  Receive Date: 20211028
  Receipt Date: 20211028
  Transmission Date: 20220303
  Serious: Yes (Hospitalization)
  Sender: FDA-Public Use
  Company Number: US-MYLANLABS-2021M1076515

PATIENT
  Age: 28 Year
  Sex: Female

DRUGS (15)
  1. CISPLATIN [Suspect]
     Active Substance: CISPLATIN
     Indication: Non-renal cell carcinoma of kidney
     Dosage: 70 MILLIGRAM/SQ. METER, CYCLE, ADMINISTERED 4 CYCLES. ADMINISTERED ON DAY 1.
     Route: 065
  2. CISPLATIN [Suspect]
     Active Substance: CISPLATIN
     Indication: Metastatic neoplasm
  3. DOXORUBICIN [Suspect]
     Active Substance: DOXORUBICIN
     Indication: Non-renal cell carcinoma of kidney
     Dosage: 30 MILLIGRAM/SQ. METER, CYCLE, ADMINISTERED 4 CYCLES. ADMINISTERED ON DAY 1.
     Route: 065
  4. DOXORUBICIN [Suspect]
     Active Substance: DOXORUBICIN
     Indication: Metastatic neoplasm
  5. CARBOPLATIN [Suspect]
     Active Substance: CARBOPLATIN
     Indication: Non-renal cell carcinoma of kidney
     Dosage: 400 MILLIGRAM/SQ. METER, CYCLE, ADMINISTERED 4 CYCLES. ADMINISTERED ON DAY 1.
     Route: 065
  6. CARBOPLATIN [Suspect]
     Active Substance: CARBOPLATIN
     Indication: Metastatic neoplasm
  7. PACLITAXEL [Suspect]
     Active Substance: PACLITAXEL
     Indication: Non-renal cell carcinoma of kidney
     Dosage: 80 MILLIGRAM/SQ. METER, CYCLE, ADMINISTERED 4 CYCLES. ADMINISTERED ON DAY 1, 8 AND 15.
     Route: 065
  8. PACLITAXEL [Suspect]
     Active Substance: PACLITAXEL
     Indication: Metastatic neoplasm
  9. BORTEZOMIB [Suspect]
     Active Substance: BORTEZOMIB
     Indication: Non-renal cell carcinoma of kidney
     Dosage: 1.3 MILLIGRAM/SQ. METER, CYCLE, ADMINISTERED 4 CYCLES. ADMINISTERED ON DAY 1, 4 AND 8.
     Route: 065
  10. BORTEZOMIB [Suspect]
     Active Substance: BORTEZOMIB
     Indication: Metastatic neoplasm
  11. GEMCITABINE [Suspect]
     Active Substance: GEMCITABINE
     Indication: Non-renal cell carcinoma of kidney
     Dosage: 1000 MILLIGRAM/SQ. METER, CYCLE, ADMINISTERED 4 CYCLES. ADMINISTERED ON DAY 1, 8 AND 15.
     Route: 065
  12. GEMCITABINE [Suspect]
     Active Substance: GEMCITABINE
     Indication: Metastatic neoplasm
  13. NIVOLUMAB [Suspect]
     Active Substance: NIVOLUMAB
     Indication: Non-renal cell carcinoma of kidney
     Dosage: UNK UNK, CYCLE, ADMINISTERED 2 CYCLES.
     Route: 065
  14. NIVOLUMAB [Suspect]
     Active Substance: NIVOLUMAB
     Indication: Metastatic neoplasm
  15. DEXRAZOXANE [Concomitant]
     Active Substance: DEXRAZOXANE
     Indication: Drug therapy
     Dosage: UNK UNK, CYCLE, , ADMINISTERED ONE CYCLE.
     Route: 065

REACTIONS (2)
  - Pseudomonal sepsis [Recovered/Resolved]
  - Off label use [Recovered/Resolved]
